FAERS Safety Report 6293793-2 (Version None)
Quarter: 2009Q3

REPORT INFORMATION
  Report Type: 
  Country: None (occurrence: None)
  Receive Date: 20090803
  Receipt Date: 20090723
  Transmission Date: 20100115
  Serious: Yes (Other)
  Sender: FDA-Public Use
  Company Number: AU-ASTRAZENECA-2009SE05662

PATIENT
  Age: 27994 Day
  Sex: Female

DRUGS (1)
  1. ATACAND HCT [Suspect]
     Dosage: 16/12.5 TABLET
     Route: 048

REACTIONS (3)
  - BLOOD AMYLASE INCREASED [None]
  - LIPASE INCREASED [None]
  - PANCREATITIS [None]
